FAERS Safety Report 23473152 (Version 2)
Quarter: 2024Q1

REPORT INFORMATION
  Report Type: Spontaneous
  Country: US (occurrence: US)
  Receive Date: 20240203
  Receipt Date: 20240301
  Transmission Date: 20240410
  Serious: No
  Sender: FDA-Public Use
  Company Number: US-ABBVIE-5606027

PATIENT
  Sex: Female
  Weight: 58.513 kg

DRUGS (1)
  1. SYNTHROID [Suspect]
     Active Substance: LEVOTHYROXINE SODIUM
     Indication: Hypothyroidism
     Dosage: FORM STRENGTH: 75 MICROGRAM
     Route: 048

REACTIONS (2)
  - Drug ineffective [Unknown]
  - Product storage error [Unknown]
